FAERS Safety Report 25643705 (Version 1)
Quarter: 2025Q3

REPORT INFORMATION
  Report Type: Spontaneous
  Country: US (occurrence: None)
  Receive Date: 20250802
  Receipt Date: 20250802
  Transmission Date: 20251020
  Serious: Yes (Life-Threatening, Hospitalization)
  Sender: FDA-CTU
  Company Number: None

PATIENT
  Age: 31 Year

DRUGS (1)
  1. CLOZAPINE [Suspect]
     Active Substance: CLOZAPINE
     Indication: Schizoaffective disorder
     Dosage: FREQUENCY : TWICE A DAY;?
     Route: 048
     Dates: start: 20250604, end: 20250610

REACTIONS (7)
  - Chest pain [None]
  - Therapy cessation [None]
  - Myocarditis [None]
  - Dyspnoea [None]
  - Blood creatine phosphokinase increased [None]
  - Acute kidney injury [None]
  - Treatment noncompliance [None]

NARRATIVE: CASE EVENT DATE: 20250611
